FAERS Safety Report 23255877 (Version 1)
Quarter: 2023Q4

REPORT INFORMATION
  Report Type: Spontaneous
  Country: US (occurrence: None)
  Receive Date: 20231204
  Receipt Date: 20231204
  Transmission Date: 20240109
  Serious: No
  Sender: FDA-Public Use
  Company Number: US-RedHill Biopharma Inc.-RDH202307-000095

PATIENT
  Age: 34 Year
  Sex: Male
  Weight: 93.8 kg

DRUGS (11)
  1. TALICIA [Suspect]
     Active Substance: AMOXICILLIN\OMEPRAZOLE MAGNESIUM\RIFABUTIN
     Indication: Helicobacter infection
     Dosage: SECOND THERAPY WITH TALICIA
     Route: 048
     Dates: start: 2023, end: 2023
  2. TALICIA [Suspect]
     Active Substance: AMOXICILLIN\OMEPRAZOLE MAGNESIUM\RIFABUTIN
     Dosage: FIRST THERAPY WITH TALICIA
     Route: 048
     Dates: start: 20230327, end: 2023
  3. OMEPRAZOLE [Concomitant]
     Active Substance: OMEPRAZOLE
     Indication: Product used for unknown indication
     Route: 048
  4. BENTYL [Concomitant]
     Active Substance: DICYCLOMINE HYDROCHLORIDE
     Indication: Muscle spasms
     Route: 048
  5. PROTONIX [Concomitant]
     Active Substance: PANTOPRAZOLE SODIUM
     Indication: Product used for unknown indication
     Route: 048
  6. AMOXICILLIN [Concomitant]
     Active Substance: AMOXICILLIN
     Indication: Helicobacter infection
     Route: 048
  7. AMOXICILLIN [Concomitant]
     Active Substance: AMOXICILLIN
     Route: 048
  8. LEVAQUIN [Concomitant]
     Active Substance: LEVOFLOXACIN
     Indication: Helicobacter infection
     Route: 048
  9. BIAXIN [Concomitant]
     Active Substance: CLARITHROMYCIN
     Indication: Helicobacter infection
     Dosage: UNK
     Route: 065
  10. VERSED [Concomitant]
     Active Substance: MIDAZOLAM HYDROCHLORIDE
     Indication: Product used for unknown indication
     Route: 065
  11. DEMEROL [Concomitant]
     Active Substance: MEPERIDINE HYDROCHLORIDE
     Indication: Product used for unknown indication
     Route: 065

REACTIONS (4)
  - Gastritis [Unknown]
  - Portal hypertensive gastropathy [Unknown]
  - Haemorrhoids [Unknown]
  - Treatment failure [Unknown]

NARRATIVE: CASE EVENT DATE: 20230101
